FAERS Safety Report 6454337-5 (Version None)
Quarter: 2009Q4

REPORT INFORMATION
  Report Type: 
  Country: None (occurrence: None)
  Receive Date: 20091124
  Receipt Date: 20091118
  Transmission Date: 20100525
  Serious: Yes (Death)
  Sender: FDA-Public Use
  Company Number: US-BAXTER-2009BH017174

PATIENT
  Age: 76 Year
  Sex: Female

DRUGS (5)
  1. REGLAN [Suspect]
     Indication: MEDICATION ERROR
     Route: 042
     Dates: start: 20061004, end: 20061004
  2. MORPHINE SULFATE [Suspect]
     Indication: HEADACHE
     Route: 042
     Dates: start: 20061004, end: 20061004
  3. MORPHINE SULFATE [Suspect]
     Indication: PAIN
     Route: 042
     Dates: start: 20061004, end: 20061004
  4. CLONAZEPAM [Concomitant]
     Indication: ANXIETY
     Route: 048
  5. DARVOCET-N 100 [Concomitant]
     Indication: PAIN
     Route: 048

REACTIONS (5)
  - DEATH [None]
  - MEDICATION ERROR [None]
  - PROTRUSION TONGUE [None]
  - SENSATION OF HEAVINESS [None]
  - TIC [None]
